FAERS Safety Report 7550458-4 (Version None)
Quarter: 2011Q2

REPORT INFORMATION
  Report Type: 
  Country: None (occurrence: None)
  Receive Date: 20110615
  Receipt Date: 20110513
  Transmission Date: 20111010
  Serious: No
  Sender: FDA-Public Use
  Company Number: US-BAUSCH-2011BL003250

PATIENT

DRUGS (1)
  1. BESIVANCE [Suspect]
     Indication: CONJUNCTIVITIS BACTERIAL
     Route: 047
     Dates: start: 20110101

REACTIONS (1)
  - EYE IRRITATION [None]
